FAERS Safety Report 8517370-5 (Version None)
Quarter: 2012Q3

REPORT INFORMATION
  Report Type: 
  Country: None (occurrence: None)
  Receive Date: 20120718
  Receipt Date: 20120710
  Transmission Date: 20120928
  Serious: Yes (Hospitalization)
  Sender: FDA-Public Use
  Company Number: US-US-EMD SERONO, INC.-7022059

PATIENT
  Sex: Male
  Weight: 23 kg

DRUGS (4)
  1. TENEX [Concomitant]
     Indication: HYPERTENSION
     Dates: end: 20100101
  2. SAIZEN [Suspect]
     Indication: SMALL FOR DATES BABY
     Dates: start: 20100501, end: 20100701
  3. UNSPECIFIED BLOOD PRESSURE MEDICATIONS [Concomitant]
     Indication: HYPERTENSION
  4. INTUNIV [Concomitant]
     Indication: HYPERTENSION
     Dates: end: 20100101

REACTIONS (1)
  - PHAEOCHROMOCYTOMA [None]
